FAERS Safety Report 9414310 (Version 2)
Quarter: 2014Q4

REPORT INFORMATION
  Report Type: Spontaneous
  Country: FR (occurrence: FR)
  Receive Date: 20130723
  Receipt Date: 20141202
  Transmission Date: 20150529
  Serious: Yes (Life-Threatening)
  Sender: FDA-Public Use
  Company Number: FR-ROCHE-1247270

PATIENT
  Age: 63 Year
  Sex: Female

DRUGS (14)
  1. CYMEVAN [Suspect]
     Active Substance: GANCICLOVIR
     Indication: CYTOMEGALOVIRUS INFECTION
     Route: 042
     Dates: start: 20130607, end: 20130609
  2. LEDERFOLINE [Suspect]
     Active Substance: LEUCOVORIN CALCIUM
     Indication: HAEMATOTOXICITY
     Dosage: SECABLE TABLET
     Route: 048
     Dates: start: 20130607, end: 20130611
  3. SOLUPRED (FRANCE) [Concomitant]
     Active Substance: PREDNISOLONE
  4. DOLIPRANE [Concomitant]
     Active Substance: ACETAMINOPHEN
  5. METHYLPREDNISOLONE. [Concomitant]
     Active Substance: METHYLPREDNISOLONE
  6. PENTACARINAT [Concomitant]
     Active Substance: PENTAMIDINE ISETHIONATE
  7. LOVENOX [Concomitant]
     Active Substance: ENOXAPARIN SODIUM
  8. INEXIUM [Suspect]
     Active Substance: ESOMEPRAZOLE
     Indication: PRODUCT USED FOR UNKNOWN INDICATION
     Route: 048
     Dates: start: 20130604, end: 20130610
  9. CETIRIZINE [Suspect]
     Active Substance: CETIRIZINE HYDROCHLORIDE
     Indication: URTICARIA CHRONIC
     Dosage: SECABLE FILM-COATED TABLET
     Route: 065
     Dates: start: 201304, end: 20130610
  10. LEDERFOLINE [Concomitant]
     Active Substance: LEUCOVORIN CALCIUM
  11. WELLVONE [Concomitant]
     Active Substance: ATOVAQUONE
  12. BACTRIM [Suspect]
     Active Substance: SULFAMETHOXAZOLE\TRIMETHOPRIM
     Indication: PNEUMOCYSTIS JIROVECII PNEUMONIA
     Route: 042
     Dates: start: 20130604, end: 20130609
  13. POLARAMINE [Concomitant]
     Active Substance: DEXCHLORPHENIRAMINE MALEATE
  14. FOSCAVIR [Concomitant]
     Active Substance: FOSCARNET SODIUM

REACTIONS (5)
  - Linear IgA disease [Recovered/Resolved]
  - Pruritus [Recovering/Resolving]
  - Face oedema [Recovering/Resolving]
  - Tongue oedema [Recovering/Resolving]
  - Eosinophilia [Recovered/Resolved with Sequelae]

NARRATIVE: CASE EVENT DATE: 201306
